FAERS Safety Report 7432456-4 (Version None)
Quarter: 2011Q2

REPORT INFORMATION
  Report Type: 
  Country: None (occurrence: None)
  Receive Date: 20110414
  Receipt Date: 20110402
  Transmission Date: 20111010
  Serious: Yes (Death)
  Sender: FDA-Public Use
  Company Number: MIN-00714

PATIENT
  Age: 91 Year
  Sex: Female

DRUGS (4)
  1. VISUDYNE [Suspect]
     Indication: AGE-RELATED MACULAR DEGENERATION
     Dosage: SINGLE CYCLE
  2. LUCENTIS [Suspect]
     Indication: AGE-RELATED MACULAR DEGENERATION
     Dosage: INTRAVITREAL INJECTION AT BASELINE AND MONTH 2
  3. DEXAMETHASONE SODIUM POSPHATE [Suspect]
     Indication: AGE-RELATED MACULAR DEGENERATION
     Dosage: 200 UG,INTRAVITREAL INJECTION AT BASELINE
  4. MINOCYCLINE HCL [Suspect]
     Indication: AGE-RELATED MACULAR DEGENERATION
     Dosage: 100 MG, DAILY, ORAL
     Route: 048

REACTIONS (1)
  - EXTRADURAL HAEMATOMA [None]
